FAERS Safety Report 17835526 (Version 3)
Quarter: 2020Q2

REPORT INFORMATION
  Report Type: Spontaneous
  Country: AR (occurrence: AR)
  Receive Date: 20200528
  Receipt Date: 20200602
  Transmission Date: 20200714
  Serious: Yes (Other)
  Sender: FDA-Public Use
  Company Number: AR-AMGEN-ARGSP2020079530

PATIENT
  Age: 66 Year
  Sex: Female
  Weight: 60 kg

DRUGS (1)
  1. ENBREL [Suspect]
     Active Substance: ETANERCEPT
     Indication: RHEUMATOID ARTHRITIS
     Dosage: 50 MG, WEEKLY
     Route: 065
     Dates: start: 20180801

REACTIONS (8)
  - Face injury [Unknown]
  - Ligament sprain [Unknown]
  - Mass [Unknown]
  - Eye contusion [Unknown]
  - Tendonitis [Unknown]
  - Loss of consciousness [Unknown]
  - Gait disturbance [Unknown]
  - Fall [Unknown]
